FAERS Safety Report 6411920-0 (Version None)
Quarter: 2009Q4

REPORT INFORMATION
  Report Type: 
  Country: None (occurrence: None)
  Receive Date: 20091020
  Receipt Date: 20091007
  Transmission Date: 20100525
  Serious: Yes (Death, Hospitalization)
  Sender: FDA-Public Use
  Company Number: 2009AC000179

PATIENT
  Age: 69 Year
  Sex: Female

DRUGS (19)
  1. DIGOXIN [Suspect]
     Dosage: 0.125 MG;QD;PO
     Route: 048
  2. ASPIRIN [Concomitant]
  3. ALBUTEROL [Concomitant]
  4. ADVAIR DISKUS 100/50 [Concomitant]
  5. LASIX [Concomitant]
  6. CYCLOSPORINE [Concomitant]
  7. LORTAB [Concomitant]
  8. RESTORIL [Concomitant]
  9. COREG [Concomitant]
  10. SYNTHROID [Concomitant]
  11. MEDROL [Concomitant]
  12. ATIVAN [Concomitant]
  13. POTASSIUM CHLORIDE [Concomitant]
  14. KLOR-CON [Concomitant]
  15. LEVOTHYROXINE SODIUM [Concomitant]
  16. METHYLPREDNISOLONE ACETATE [Concomitant]
  17. LORAZEPAM [Concomitant]
  18. OXYCODONE HCL AND ACETAMINOPHEN [Concomitant]
  19. HYDROCODONE BITARTRATE AND ACETAMINOPHEN [Concomitant]

REACTIONS (12)
  - CARDIOACTIVE DRUG LEVEL INCREASED [None]
  - CHRONIC RESPIRATORY FAILURE [None]
  - COUGH [None]
  - DYSPNOEA [None]
  - ECONOMIC PROBLEM [None]
  - HYPOTHYROIDISM [None]
  - INJURY [None]
  - PALLOR [None]
  - RETCHING [None]
  - SURGERY [None]
  - TACHYCARDIA [None]
  - WHEEZING [None]
